FAERS Safety Report 8410099-3 (Version None)
Quarter: 2012Q2

REPORT INFORMATION
  Report Type: 
  Country: None (occurrence: None)
  Receive Date: 20120529
  Receipt Date: 20120516
  Transmission Date: 20120825
  Serious: Yes (Hospitalization)
  Sender: FDA-Public Use
  Company Number: UTC-018866

PATIENT
  Age: 41 Year
  Sex: Female

DRUGS (3)
  1. REMODULIN [Suspect]
     Indication: PRODUCT USED FOR UNKNOWN INDICATION
     Dosage: 0.625 NKM, SUBCUTANEOUS
     Route: 058
  2. TRACLEER [Concomitant]
  3. REVATIO [Concomitant]

REACTIONS (4)
  - NAUSEA [None]
  - ABDOMINAL PAIN UPPER [None]
  - VOMITING [None]
  - NEPHROLITHIASIS [None]
